FAERS Safety Report 8957519 (Version 1)
Quarter: 2012Q4

REPORT INFORMATION
  Report Type: 
  Country: US (occurrence: US)
  Receive Date: 20121210
  Receipt Date: 20121210
  Transmission Date: 20130627
  Serious: Yes (Other)
  Sender: FDA-Public Use
  Company Number: US-PFIZER INC-2012309797

PATIENT
  Sex: Female
  Weight: 75.74 kg

DRUGS (9)
  1. LYRICA [Suspect]
     Indication: LEG PAIN
     Dosage: 300 mg, 2x/day
  2. LYRICA [Suspect]
     Indication: MUSCLE STRAIN
  3. LYRICA [Suspect]
     Indication: TWITCHING OF LIMBS
  4. LYRICA [Suspect]
     Indication: BURNING LEG
  5. LYRICA [Suspect]
     Indication: LEG DISCOMFORT
  6. GABAPENTIN [Concomitant]
     Dosage: 300 mg, 2x/day
  7. PRAMIPEXOLE DIHYDROCHLORIDE [Concomitant]
     Dosage: UNK, daily
  8. LOVASTATIN [Concomitant]
     Indication: HIGH CHOLESTEROL
     Dosage: 20 mg, daily
  9. CYMBALTA [Concomitant]
     Dosage: 30 mg, daily
     Dates: start: 2012

REACTIONS (5)
  - Back disorder [Unknown]
  - Intervertebral disc disorder [Unknown]
  - Memory impairment [Unknown]
  - Drug ineffective [Unknown]
  - Malaise [Unknown]
